FAERS Safety Report 6216902-X (Version None)
Quarter: 2009Q2

REPORT INFORMATION
  Report Type: 
  Country: None (occurrence: None)
  Receive Date: 20090605
  Receipt Date: 20090527
  Transmission Date: 20091009
  Serious: Yes (Hospitalization, Other)
  Sender: FDA-Public Use
  Company Number: US-ABBOTT-09P-163-0576291-00

PATIENT
  Sex: Male
  Weight: 51.302 kg

DRUGS (10)
  1. DEPAKOTE ER [Suspect]
     Indication: FEBRILE CONVULSION
     Route: 048
     Dates: start: 19930101, end: 20060101
  2. DEPAKOTE ER [Suspect]
     Route: 048
     Dates: start: 20070701, end: 20080101
  3. DEPAKOTE ER [Suspect]
     Route: 048
     Dates: start: 20080101, end: 20090401
  4. DEPAKOTE ER [Suspect]
     Route: 048
     Dates: start: 20090401
  5. LAMICTAL [Suspect]
     Indication: CONVULSION
     Dates: start: 20060101, end: 20070701
  6. KEPPRA [Suspect]
     Indication: CONVULSION
     Dates: start: 20060101, end: 20070701
  7. TOPAMAX [Concomitant]
     Indication: CONVULSION
  8. VITAMIN B-12 [Concomitant]
     Indication: VITAMIN SUPPLEMENTATION
  9. VIT D [Concomitant]
     Indication: VITAMIN SUPPLEMENTATION
  10. SUPER OMEGA [Concomitant]
     Indication: NUTRITIONAL SUPPORT

REACTIONS (10)
  - ATROPHY [None]
  - COGNITIVE DISORDER [None]
  - CONVULSION [None]
  - GAIT DISTURBANCE [None]
  - HEMIPLEGIA [None]
  - MEMORY IMPAIRMENT [None]
  - POSTICTAL PARALYSIS [None]
  - SOMNOLENCE [None]
  - SPEECH DISORDER [None]
  - WEIGHT DECREASED [None]
